FAERS Safety Report 4682947-4 (Version None)
Quarter: 2005Q2

REPORT INFORMATION
  Report Type: 
  Country: None (occurrence: None)
  Receive Date: 20050602
  Receipt Date: 20050418
  Transmission Date: 20051028
  Serious: No
  Sender: FDA-Public Use
  Company Number: USA050393495

PATIENT
  Age: 45 Year
  Sex: Female

DRUGS (1)
  1. CYMBALTA [Suspect]
     Indication: NEUROPATHY
     Dosage: 20 MG DAY
     Dates: start: 20050303, end: 20050323

REACTIONS (3)
  - HYPERHIDROSIS [None]
  - PAIN [None]
  - TACHYCARDIA [None]
